FAERS Safety Report 6302813-8 (Version None)
Quarter: 2009Q3

REPORT INFORMATION
  Report Type: 
  Country: None (occurrence: None)
  Receive Date: 20090810
  Receipt Date: 20090804
  Transmission Date: 20100115
  Serious: Yes (Hospitalization)
  Sender: FDA-Public Use
  Company Number: DE-BRISTOL-MYERS SQUIBB COMPANY-14721997

PATIENT
  Age: 67 Year
  Sex: Male
  Weight: 53 kg

DRUGS (10)
  1. CETUXIMAB [Suspect]
     Indication: NON-SMALL CELL LUNG CANCER
     Dosage: CETUXIMAB 5MG/ML RECENT INF 13JUL09:4TH INF
     Route: 042
     Dates: start: 20090622, end: 20090713
  2. CISPLATIN [Suspect]
     Indication: NON-SMALL CELL LUNG CANCER
     Dosage: RECENT INF 13JUL09:2ND INF
     Route: 042
     Dates: start: 20090622, end: 20090713
  3. CILENGITIDE [Suspect]
     Indication: NON-SMALL CELL LUNG CANCER
     Dosage: RECENT INF 13JUL09:7TH INF 21 DAY
     Route: 042
     Dates: start: 20090622, end: 20090713
  4. VINORELBINE [Suspect]
     Indication: NON-SMALL CELL LUNG CANCER
     Dosage: RECENT INF 13JUL09:3RD INF
     Route: 042
     Dates: start: 20090622, end: 20090713
  5. MOXIFLOXACIN HCL [Concomitant]
     Route: 048
     Dates: start: 20090501
  6. ENSURE [Concomitant]
     Dosage: ENSURE DRINKS
     Route: 048
     Dates: start: 20090605
  7. ACETYLSALICYLIC ACID [Concomitant]
     Route: 048
     Dates: start: 20090615
  8. DEXPANTHENOL [Concomitant]
     Route: 003
     Dates: start: 20090709
  9. CEFEPIME [Concomitant]
     Indication: PROPHYLAXIS
     Route: 048
     Dates: start: 20090622
  10. APREPITANT [Concomitant]
     Indication: PROPHYLAXIS
     Dosage: CYCLE DAY 2-3
     Route: 048
     Dates: start: 20090622

REACTIONS (1)
  - HAEMATOCHEZIA [None]
